FAERS Safety Report 16127489 (Version 5)
Quarter: 2019Q2

REPORT INFORMATION
  Report Type: Spontaneous
  Country: US (occurrence: US)
  Receive Date: 20190328
  Receipt Date: 20190621
  Transmission Date: 20190711
  Serious: No
  Sender: FDA-Public Use
  Company Number: US-PFIZER INC-2019093046

PATIENT
  Age: 71 Year
  Sex: Female
  Weight: 82.54 kg

DRUGS (2)
  1. LYRICA [Suspect]
     Active Substance: PREGABALIN
     Indication: NEUROPATHY PERIPHERAL
     Dosage: 75 MG, THREE TO FOUR CAPSULES AT BEDTIME
     Route: 048
  2. LYRICA [Suspect]
     Active Substance: PREGABALIN
     Dosage: 75 MG, DAILY
     Dates: start: 2018

REACTIONS (2)
  - Off label use [Unknown]
  - Poor quality sleep [Recovering/Resolving]
